FAERS Safety Report 5071241-8 (Version None)
Quarter: 2006Q3

REPORT INFORMATION
  Report Type: 
  Country: None (occurrence: None)
  Receive Date: 20060804
  Receipt Date: 20060221
  Transmission Date: 20061208
  Serious: Yes (Hospitalization)
  Sender: FDA-Public Use
  Company Number: PHMT2006CA00743

PATIENT
  Age: 41 Year
  Sex: Male

DRUGS (1)
  1. ZADITEN [Suspect]
     Indication: ASTHMA
     Dosage: 5 MG, QD
     Route: 048

REACTIONS (9)
  - ARTHRALGIA [None]
  - CRYSTAL URINE [None]
  - HAEMATURIA [None]
  - LARYNGEAL ULCERATION [None]
  - MYALGIA [None]
  - NEPHROLITHIASIS [None]
  - PHARYNGEAL ULCERATION [None]
  - RENAL FAILURE [None]
  - VOCAL CORD DISORDER [None]
